FAERS Safety Report 5139360-5 (Version None)
Quarter: 2006Q4

REPORT INFORMATION
  Report Type: 
  Country: None (occurrence: None)
  Receive Date: 20061024
  Receipt Date: 20061009
  Transmission Date: 20070319
  Serious: Yes (Death, Hospitalization)
  Sender: FDA-Public Use
  Company Number: 2006100028

PATIENT
  Age: 60 Year
  Sex: Male

DRUGS (4)
  1. DEPEN [Suspect]
     Indication: ILL-DEFINED DISORDER
     Dosage: 500 MG (2 IN 1 D), PO
     Route: 048
  2. PREDNISONE TAB [Concomitant]
  3. PANTOPRAZOLE SODIUM [Concomitant]
  4. MORPHINE SULFATE [Concomitant]

REACTIONS (15)
  - ABDOMINAL PAIN LOWER [None]
  - BAND NEUTROPHIL COUNT DECREASED [None]
  - BLOOD LACTIC ACID INCREASED [None]
  - CARDIOGENIC SHOCK [None]
  - ESCHERICHIA INFECTION [None]
  - INFECTION [None]
  - LEUKOCYTOSIS [None]
  - LEUKOPENIA [None]
  - LYMPHOPENIA [None]
  - NAUSEA [None]
  - PSEUDOMONAS INFECTION [None]
  - SERRATIA INFECTION [None]
  - STRONGYLOIDIASIS [None]
  - THROMBOCYTOPENIA [None]
  - VOMITING [None]
